FAERS Safety Report 10302086 (Version 2)
Quarter: 2014Q3

REPORT INFORMATION
  Report Type: Spontaneous
  Country: AT (occurrence: None)
  Receive Date: 20140709
  Receipt Date: 20140715
  Transmission Date: 20150326
  Serious: Yes (Other)
  Sender: FDA-Public Use
  Company Number: AUR-APL-2014-07192

PATIENT
  Age: 83 Year
  Sex: Female

DRUGS (14)
  1. SERTRALINE [Suspect]
     Active Substance: SERTRALINE HYDROCHLORIDE
     Indication: PRODUCT USED FOR UNKNOWN INDICATION
  2. NEBIVOLOL (NEBIVOLOL) (NEBIVOLOL) [Concomitant]
     Active Substance: NEBIVOLOL
  3. LEVOTHYROXINE SODIUM. [Suspect]
     Active Substance: LEVOTHYROXINE SODIUM
     Indication: PRODUCT USED FOR UNKNOWN INDICATION
  4. DABIGATRAN EXEXILATE [Suspect]
     Active Substance: DABIGATRAN ETEXILATE
     Indication: ANTICOAGULANT THERAPY
  5. SIMVASTATIN (SIMVASTATIN) UNKNOWN, UNKNOWN [Suspect]
     Active Substance: SIMVASTATIN
     Indication: PRODUCT USED FOR UNKNOWN INDICATION
  6. DIGITOXIN (DIGITOXIN) [Concomitant]
     Active Substance: DIGITOXIN
  7. PANTOPRAZOLE (PANTOPRAZOLE) [Suspect]
     Active Substance: PANTOPRAZOLE SODIUM
     Indication: PRODUCT USED FOR UNKNOWN INDICATION
     Route: 048
  8. RIVASTIGMINE [Concomitant]
     Active Substance: RIVASTIGMINE
  9. PHENPROCOUMON (PHENPROCOUMON) [Concomitant]
     Active Substance: PHENPROCOUMON
  10. INDAPAMIDE (INDAPAMIDE) [Concomitant]
     Active Substance: INDAPAMIDE
  11. RISPERIDONE (RISPERIDONE) [Concomitant]
     Active Substance: RISPERIDONE
  12. MELOXICAM (MELOXICAM) [Suspect]
     Active Substance: MELOXICAM
     Indication: PRODUCT USED FOR UNKNOWN INDICATION
  13. RAMIPRIL (RAMIPRIL) [Concomitant]
     Active Substance: RAMIPRIL
  14. FUROSEMIDE (FUROSEMIDE) [Concomitant]
     Active Substance: FUROSEMIDE

REACTIONS (7)
  - Anaemia [None]
  - Drug interaction [None]
  - Chronic gastritis [None]
  - Prothrombin time shortened [None]
  - Gastrointestinal haemorrhage [None]
  - Renal impairment [None]
  - Activated partial thromboplastin time prolonged [None]
